FAERS Safety Report 22765872 (Version 7)
Quarter: 2025Q4

REPORT INFORMATION
  Report Type: Report from Study
  Country: CA (occurrence: CA)
  Receive Date: 20230731
  Receipt Date: 20251026
  Transmission Date: 20260117
  Serious: Yes (Other)
  Sender: JOHNSON AND JOHNSON
  Company Number: CA-JNJFOC-20200524960

PATIENT
  Age: 32 Year
  Sex: Female
  Weight: 68.04 kg

DRUGS (6)
  1. SIMPONI [Suspect]
     Active Substance: GOLIMUMAB
     Indication: Crohn^s disease
     Dosage: 100.00 MG/ML?LAST ADMINISTRATION DATE: MAY-2025
     Route: 058
     Dates: start: 20181019
  2. SIMPONI [Suspect]
     Active Substance: GOLIMUMAB
     Indication: Colitis ulcerative
     Route: 058
     Dates: start: 20200519
  3. SIMPONI [Suspect]
     Active Substance: GOLIMUMAB
     Route: 058
     Dates: start: 20230720
  4. SIMPONI [Suspect]
     Active Substance: GOLIMUMAB
     Dosage: 100.00 MG/ML
     Route: 058
     Dates: start: 20181019
  5. SIMPONI [Suspect]
     Active Substance: GOLIMUMAB
     Dosage: 100.00 MG/ML
     Route: 058
     Dates: start: 20181019, end: 202504
  6. SIMPONI [Suspect]
     Active Substance: GOLIMUMAB
     Route: 058

REACTIONS (5)
  - Colitis ulcerative [Not Recovered/Not Resolved]
  - Needle issue [Unknown]
  - Off label use [Unknown]
  - Product use issue [Unknown]
  - Product dose omission issue [Unknown]

NARRATIVE: CASE EVENT DATE: 20230720
